FAERS Safety Report 8836476 (Version 2)
Quarter: 2012Q4

REPORT INFORMATION
  Report Type: 
  Country: US (occurrence: US)
  Receive Date: 20121011
  Receipt Date: 20121109
  Transmission Date: 20130627
  Serious: Yes (Other)
  Sender: FDA-Public Use
  Company Number: US-ELI_LILLY_AND_COMPANY-US201210002005

PATIENT
  Sex: Male
  Weight: 71.2 kg

DRUGS (12)
  1. CIALIS [Suspect]
     Indication: ERECTILE DYSFUNCTION
     Dosage: 20 mg, UNK
  2. CIALIS [Suspect]
     Dosage: 10 mg, UNK
  3. CIALIS [Suspect]
     Dosage: 5 mg, UNK
  4. CIALIS [Suspect]
     Dosage: 10 mg, prn
     Dates: start: 201201
  5. FLOMAX [Concomitant]
     Dosage: .04 mg, each evening
  6. DOXAZOCIN [Concomitant]
     Dosage: 1 mg, unknown
  7. ALLOPURINOL [Concomitant]
     Indication: GOUT
     Dosage: 300 mg, each morning
  8. LOSARTAN [Concomitant]
     Dosage: 25 mg, unknown
  9. AMLODIPINE [Concomitant]
  10. METOPROLOL [Concomitant]
     Dosage: 25 mg, unknown
  11. ATORVASTATIN [Concomitant]
     Dosage: 40 mg, unknown
  12. ASA [Concomitant]
     Dosage: 81 mg, prn

REACTIONS (3)
  - Blood pressure decreased [Recovered/Resolved]
  - Dizziness [Recovering/Resolving]
  - Drug ineffective [Recovered/Resolved]
